FAERS Safety Report 5211921-4 (Version None)
Quarter: 2007Q1

REPORT INFORMATION
  Report Type: 
  Country: None (occurrence: None)
  Receive Date: 20070116
  Receipt Date: 20070116
  Transmission Date: 20070707
  Serious: Yes (Hospitalization)
  Sender: FDA-Public Use
  Company Number: None

PATIENT
  Sex: Male
  Weight: 126.6 kg

DRUGS (4)
  1. INTERLEUKIN-2, RECOMBINANT (CHIRON; ALDESLEUKIN; PROLEUKIN) [Suspect]
     Dosage: 638.4 MILLION IU
     Dates: end: 20061207
  2. MAXZIDE [Concomitant]
  3. NORVASC [Concomitant]
  4. TOPROL-XL [Concomitant]

REACTIONS (4)
  - DRUG TOXICITY [None]
  - HEPATIC FAILURE [None]
  - RENAL FAILURE ACUTE [None]
  - RESPIRATORY DISTRESS [None]
